FAERS Safety Report 8104422-7 (Version None)
Quarter: 2012Q1

REPORT INFORMATION
  Report Type: 
  Country: None (occurrence: None)
  Receive Date: 20120130
  Receipt Date: 20120119
  Transmission Date: 20120608
  Serious: Yes (Hospitalization)
  Sender: FDA-Public Use
  Company Number: SI-JNJFOC-20120109016

PATIENT
  Sex: Female
  Weight: 63 kg

DRUGS (5)
  1. XARELTO [Suspect]
     Indication: HIP ARTHROPLASTY
     Route: 048
     Dates: start: 20111017, end: 20111106
  2. LEVOTHYROXINE SODIUM [Concomitant]
  3. PANTOPRAZOLE [Concomitant]
  4. SPIRIVA [Concomitant]
     Indication: ASTHMA
  5. VENTOLIN [Concomitant]
     Indication: ASTHMA

REACTIONS (1)
  - PULMONARY EMBOLISM [None]
